FAERS Safety Report 5767069-3 (Version None)
Quarter: 2008Q2

REPORT INFORMATION
  Report Type: 
  Country: None (occurrence: None)
  Receive Date: 20080612
  Receipt Date: 20080609
  Transmission Date: 20081010
  Serious: Yes (Hospitalization)
  Sender: FDA-Public Use
  Company Number: FR-AVENTIS-200812258EU

PATIENT
  Age: 86 Year
  Sex: Female

DRUGS (13)
  1. LOVENOX [Suspect]
     Route: 058
     Dates: start: 20080416, end: 20080419
  2. COUMADIN [Suspect]
     Route: 048
     Dates: start: 20080416, end: 20080427
  3. CALCIPARINE [Suspect]
     Dosage: DOSE: UNK
     Route: 042
     Dates: start: 20080420, end: 20080428
  4. HEMIGOXINE [Concomitant]
     Indication: HYPERTENSION
     Route: 048
  5. FUROSEMIDE [Concomitant]
     Indication: HYPERTENSION
     Route: 048
  6. ADANCOR [Concomitant]
     Indication: HYPERTENSION
     Route: 048
  7. EUTHYRAL [Concomitant]
     Indication: HYPOTHYROIDISM
     Route: 048
  8. FORLAX [Concomitant]
     Indication: CONSTIPATION
     Route: 048
  9. DIFFU K [Concomitant]
     Route: 048
     Dates: start: 20080428
  10. SODIUM CHLORIDE [Concomitant]
     Route: 042
     Dates: start: 20080428, end: 20080428
  11. SODIUM CHLORIDE [Concomitant]
     Route: 042
     Dates: start: 20080429
  12. DOPAMINE HCL [Concomitant]
     Indication: CARDIOGENIC SHOCK
     Route: 042
     Dates: start: 20080428
  13. NEXIUM [Concomitant]
     Route: 042
     Dates: start: 20080428

REACTIONS (3)
  - MUSCLE HAEMORRHAGE [None]
  - RED BLOOD CELL COUNT DECREASED [None]
  - RENAL FAILURE ACUTE [None]
